FAERS Safety Report 11198755 (Version 1)
Quarter: 2015Q2

REPORT INFORMATION
  Report Type: Spontaneous
  Country: ES (occurrence: ES)
  Receive Date: 20150618
  Receipt Date: 20150618
  Transmission Date: 20150821
  Serious: Yes (Other)
  Sender: FDA-Public Use
  Company Number: ES-SUN PHARMACEUTICAL INDUSTRIES LTD-2015RR-98875

PATIENT

DRUGS (8)
  1. CISATRACURIUM [Suspect]
     Active Substance: CISATRACURIUM
     Indication: PRODUCT USED FOR UNKNOWN INDICATION
     Dosage: 10 MG, UNK
     Route: 065
  2. CLOBAZAM [Suspect]
     Active Substance: CLOBAZAM
     Indication: GLIOMA
     Dosage: 12 MG, BID
     Route: 065
  3. PROPOFOL. [Suspect]
     Active Substance: PROPOFOL
     Dosage: 60 MG
     Route: 065
  4. REMIFENTANIL [Suspect]
     Active Substance: REMIFENTANIL
     Indication: SEDATION
     Dosage: 0.025 G/KG/MIN
     Route: 065
  5. LEVETIRACETAM. [Interacting]
     Active Substance: LEVETIRACETAM
     Indication: GLIOMA
     Dosage: 1500 MG, BID
     Route: 065
  6. PROPOFOL. [Suspect]
     Active Substance: PROPOFOL
     Indication: SEDATION
     Dosage: 1MG/KG/H
     Route: 065
  7. VALPROATE DE SODIUM [Interacting]
     Active Substance: VALPROATE SODIUM
     Indication: GLIOMA
     Dosage: 1000MG-500MG-500MG
     Route: 065
  8. BUPIVACAINE [Suspect]
     Active Substance: BUPIVACAINE
     Indication: LOCAL ANAESTHESIA
     Dosage: 40 ML, TOTAL
     Route: 065

REACTIONS (4)
  - Respiratory depression [Recovering/Resolving]
  - Hyperammonaemia [Recovering/Resolving]
  - Drug interaction [Recovering/Resolving]
  - Encephalopathy [Recovering/Resolving]
